FAERS Safety Report 4758871-5 (Version None)
Quarter: 2005Q3

REPORT INFORMATION
  Report Type: 
  Country: None (occurrence: None)
  Receive Date: 20050826
  Receipt Date: 20050818
  Transmission Date: 20060218
  Serious: Yes (Disabling, Other)
  Sender: FDA-Public Use
  Company Number: 2003113711

PATIENT
  Age: 67 Year
  Sex: Female
  Weight: 68.0396 kg

DRUGS (6)
  1. NORVASC [Suspect]
     Indication: ILL-DEFINED DISORDER
     Dosage: 5 MG (DAILY), ORAL
     Route: 048
  2. TOPROL (METOPROLOL) [Concomitant]
  3. PREMARIN [Concomitant]
  4. AMITRIPTYLINE HCL [Concomitant]
  5. LORAZEPAM [Concomitant]
  6. COZAAR [Concomitant]

REACTIONS (2)
  - DYSSTASIA [None]
  - PAIN IN EXTREMITY [None]
